FAERS Safety Report 7735584-9 (Version None)
Quarter: 2011Q3

REPORT INFORMATION
  Report Type: 
  Country: None (occurrence: None)
  Receive Date: 20110907
  Receipt Date: 20110901
  Transmission Date: 20111222
  Serious: Yes (Other)
  Sender: FDA-Public Use
  Company Number: GW-ABBOTT-11P-143-0849395-00

PATIENT
  Age: 36 Year
  Sex: Male
  Weight: 60 kg

DRUGS (5)
  1. COTRIM [Concomitant]
     Indication: PROPHYLAXIS
     Route: 048
     Dates: start: 20110715
  2. ABACAVIR [Concomitant]
     Indication: HIV INFECTION
     Route: 048
     Dates: start: 20110715, end: 20110826
  3. KALETRA [Suspect]
     Indication: HIV INFECTION
     Dosage: DAILY DOSE: 800 MG/200 MG, UNIT DOSE: 200 MG/50 MG
     Route: 048
     Dates: start: 20110716, end: 20110826
  4. LAMIVUDINE [Concomitant]
     Indication: HIV INFECTION
     Route: 048
     Dates: start: 20110715, end: 20110826
  5. ACIDO FOLICO [Concomitant]
     Indication: VITAMIN SUPPLEMENTATION
     Route: 048
     Dates: start: 20110715

REACTIONS (2)
  - ALANINE AMINOTRANSFERASE INCREASED [None]
  - ASPARTATE AMINOTRANSFERASE INCREASED [None]
